FAERS Safety Report 23997625 (Version 5)
Quarter: 2025Q1

REPORT INFORMATION
  Report Type: Other
  Country: CA (occurrence: CA)
  Receive Date: 20240621
  Receipt Date: 20250303
  Transmission Date: 20250409
  Serious: Yes (Other)
  Sender: APOTEX
  Company Number: CA-APOTEX-2024AP007243

PATIENT
  Age: 90 Year
  Sex: Female
  Weight: 59 kg

DRUGS (9)
  1. DARIFENACIN [Suspect]
     Active Substance: DARIFENACIN
     Indication: Hypertonic bladder
     Route: 065
  2. MIRTAZAPINE [Suspect]
     Active Substance: MIRTAZAPINE
     Indication: Hypertonic bladder
     Route: 065
  3. METOPROLOL [Suspect]
     Active Substance: METOPROLOL
     Indication: Atrial fibrillation
     Route: 065
  4. ORENCIA [Suspect]
     Active Substance: ABATACEPT
     Indication: Rheumatoid arthritis
     Route: 042
  5. ORENCIA [Suspect]
     Active Substance: ABATACEPT
     Route: 042
  6. ORENCIA [Suspect]
     Active Substance: ABATACEPT
     Route: 042
  7. CANDESARTAN [Concomitant]
     Active Substance: CANDESARTAN
     Indication: Product used for unknown indication
     Route: 065
  8. PREDNISONE [Concomitant]
     Active Substance: PREDNISONE
     Indication: Product used for unknown indication
     Route: 065
  9. VITAMIN D NOS [Concomitant]
     Active Substance: CHOLECALCIFEROL\ERGOCALCIFEROL
     Indication: Product used for unknown indication
     Route: 065

REACTIONS (13)
  - Clostridium difficile infection [Recovering/Resolving]
  - Neuropathy peripheral [Recovering/Resolving]
  - Prescribed overdose [Recovering/Resolving]
  - Herpes zoster [Recovering/Resolving]
  - Atrial fibrillation [Recovering/Resolving]
  - Blood pressure systolic increased [Recovering/Resolving]
  - Weight decreased [Recovering/Resolving]
  - Arthritis [Recovering/Resolving]
  - Inappropriate schedule of product administration [Recovering/Resolving]
  - Ophthalmic herpes zoster [Recovering/Resolving]
  - Pain [Recovering/Resolving]
  - Skin disorder [Recovering/Resolving]
  - Dizziness [Recovering/Resolving]
